FAERS Safety Report 4752354-4 (Version None)
Quarter: 2005Q3

REPORT INFORMATION
  Report Type: 
  Country: None (occurrence: None)
  Receive Date: 20050825
  Receipt Date: 20050815
  Transmission Date: 20060218
  Serious: Yes (Hospitalization)
  Sender: FDA-Public Use
  Company Number: PHBS2005HU11878

PATIENT
  Age: 32 Year
  Sex: Female

DRUGS (1)
  1. BROMOCRIPTINE MESYLATE [Suspect]
     Indication: PROLACTINOMA
     Dosage: 7.5 MG/DAY
     Route: 065

REACTIONS (4)
  - PITUITARY TUMOUR BENIGN [None]
  - PITUITARY TUMOUR REMOVAL [None]
  - TUMOUR HAEMORRHAGE [None]
  - VISUAL FIELD DEFECT [None]
